FAERS Safety Report 5521725-0 (Version None)
Quarter: 2007Q4

REPORT INFORMATION
  Report Type: 
  Country: None (occurrence: None)
  Receive Date: 20071120
  Receipt Date: 20071113
  Transmission Date: 20080405
  Serious: Yes (Hospitalization, Other)
  Sender: FDA-Public Use
  Company Number: PHEH2007US06920

PATIENT
  Age: 57 Year
  Sex: Female
  Weight: 58.049 kg

DRUGS (16)
  1. COMBIPATCH [Suspect]
     Indication: MENOPAUSE
     Dosage: .05MG/PATCH
     Dates: start: 20020822
  2. PREMPRO [Suspect]
     Indication: MENOPAUSE
     Dosage: 0.625 MG, UNK
     Dates: start: 19970211, end: 20030601
  3. WELLBUTRIN [Concomitant]
     Dosage: UNK, UNK
     Route: 048
     Dates: start: 20010501
  4. LEXAPRO [Concomitant]
     Route: 048
  5. XANAX [Concomitant]
     Route: 048
     Dates: start: 20030101
  6. TRAZODONE HCL [Concomitant]
     Route: 048
     Dates: start: 19960101
  7. ZOLOFT [Concomitant]
     Indication: DEPRESSION
     Route: 048
  8. COVERA-HS [Concomitant]
     Indication: DEPRESSION
     Route: 048
     Dates: start: 19970101
  9. LUVOX [Concomitant]
     Indication: DEPRESSION
     Route: 048
     Dates: start: 19970101
  10. SERZONE [Concomitant]
     Indication: DEPRESSION
     Dosage: UNK, UNK
     Route: 048
     Dates: start: 20010101
  11. REMERON [Concomitant]
     Indication: DEPRESSION
     Route: 048
     Dates: start: 20010101
  12. BUSPAR [Concomitant]
     Indication: DEPRESSION
     Route: 048
     Dates: start: 20010101
  13. CELEXA [Concomitant]
     Indication: DEPRESSION
     Route: 048
     Dates: start: 20020101
  14. PREMARIN [Suspect]
  15. PROZAC [Concomitant]
     Indication: DEPRESSION
  16. DESYREL [Concomitant]
     Indication: DEPRESSION

REACTIONS (9)
  - BLOOD CHOLESTEROL INCREASED [None]
  - BREAST CANCER [None]
  - BREAST FIBROSIS [None]
  - BREAST PAIN [None]
  - MASTECTOMY [None]
  - OSTEOPENIA [None]
  - SEROMA [None]
  - UTERINE CERVICAL SQUAMOUS METAPLASIA [None]
  - UTERINE HAEMORRHAGE [None]
